FAERS Safety Report 9062254 (Version 1)
Quarter: 2013Q1

REPORT INFORMATION
  Report Type: Spontaneous
  Country: US (occurrence: None)
  Receive Date: 20130122
  Receipt Date: 20130122
  Transmission Date: 20140127
  Serious: Yes (Hospitalization)
  Sender: FDA-Public Use
  Company Number: 13AE001

PATIENT
  Sex: Female

DRUGS (1)
  1. QUALITY PLUS APAP 325MG, CPM 2MG, DEXTRO 10MG, PE5MG [Suspect]
     Indication: NASOPHARYNGITIS
     Dosage: 2 TABLETS 8-PM-BY MOUTH
     Dates: start: 20121231

REACTIONS (5)
  - Heart rate increased [None]
  - Blood pressure increased [None]
  - Dry mouth [None]
  - Tremor [None]
  - Muscular weakness [None]
